FAERS Safety Report 17217633 (Version 1)
Quarter: 2019Q4

REPORT INFORMATION
  Report Type: Spontaneous
  Country: CA (occurrence: CA)
  Receive Date: 20191231
  Receipt Date: 20191231
  Transmission Date: 20200122
  Serious: Yes (Hospitalization, Other)
  Sender: FDA-Public Use
  Company Number: CA-AUROBINDO-AUR-APL-2019-107124

PATIENT
  Age: 58 Year
  Sex: Female

DRUGS (16)
  1. CLOPIDOGREL [Suspect]
     Active Substance: CLOPIDOGREL BISULFATE
     Indication: VASCULAR STENT THROMBOSIS
     Dosage: 75 MILLIGRAM, ONCE A DAY
     Route: 065
  2. LISINOPRIL. [Concomitant]
     Active Substance: LISINOPRIL
     Indication: PRODUCT USED FOR UNKNOWN INDICATION
     Dosage: UNK
     Route: 065
  3. SIMVASTATIN. [Concomitant]
     Active Substance: SIMVASTATIN
     Indication: DYSLIPIDAEMIA
     Dosage: UNK
     Route: 065
  4. BEZAFIBRATE [Concomitant]
     Active Substance: BEZAFIBRATE
     Indication: DYSLIPIDAEMIA
     Dosage: UNK
     Route: 065
  5. NIACIN. [Concomitant]
     Active Substance: NIACIN
     Indication: DYSLIPIDAEMIA
     Dosage: UNK
     Route: 065
  6. PREDNISONE. [Concomitant]
     Active Substance: PREDNISONE
     Indication: IMMUNOSUPPRESSANT DRUG THERAPY
     Dosage: 2.5 MILLIGRAM, ONCE A DAY
     Route: 065
  7. ATORVASTATIN TABLETS [Suspect]
     Active Substance: ATORVASTATIN
     Indication: DYSLIPIDAEMIA
     Dosage: 80 MILLIGRAM, ONCE A DAY
     Route: 065
  8. ACETYLSALICYLIC ACID ENTERIC COATED [Concomitant]
     Active Substance: ASPIRIN
     Indication: VASCULAR STENT THROMBOSIS
     Dosage: UNK
     Route: 065
  9. LOVASTATIN. [Concomitant]
     Active Substance: LOVASTATIN
     Indication: DYSLIPIDAEMIA
     Dosage: UNK
     Route: 065
  10. CLOPIDOGREL [Suspect]
     Active Substance: CLOPIDOGREL BISULFATE
     Indication: PROPHYLAXIS
  11. AZATHIOPRINE. [Concomitant]
     Active Substance: AZATHIOPRINE
     Indication: IMMUNOSUPPRESSANT DRUG THERAPY
     Dosage: 25 MILLIGRAM, EVERY OTHER DAY
     Route: 065
  12. CICLOSPORIN [Suspect]
     Active Substance: CYCLOSPORINE
     Indication: IMMUNOSUPPRESSANT DRUG THERAPY
     Dosage: 65 MILLIGRAM, TWO TIMES A DAY
     Route: 065
  13. CLOPIDOGREL [Suspect]
     Active Substance: CLOPIDOGREL BISULFATE
     Indication: PROPHYLAXIS
  14. FENOFIBRATE. [Concomitant]
     Active Substance: FENOFIBRATE
     Indication: DYSLIPIDAEMIA
     Dosage: UNK
     Route: 065
  15. PRAVASTATIN. [Concomitant]
     Active Substance: PRAVASTATIN
     Indication: DYSLIPIDAEMIA
     Dosage: UNK
     Route: 065
  16. CLOPIDOGREL [Suspect]
     Active Substance: CLOPIDOGREL BISULFATE
     Indication: VASCULAR STENT THROMBOSIS
     Dosage: UNK
     Route: 065

REACTIONS (3)
  - Rhabdomyolysis [Recovered/Resolved]
  - Acute kidney injury [Recovered/Resolved]
  - Drug interaction [Recovered/Resolved]
